FAERS Safety Report 26193397 (Version 1)
Quarter: 2025Q4

REPORT INFORMATION
  Report Type: Spontaneous
  Country: US (occurrence: US)
  Receive Date: 20251223
  Receipt Date: 20251223
  Transmission Date: 20260117
  Serious: No
  Sender: MERCK SHARP & DOHME LLC
  Company Number: US-009507513-2361569

PATIENT
  Age: 56 Year
  Sex: Male

DRUGS (2)
  1. DAPTOMYCIN [Suspect]
     Active Substance: DAPTOMYCIN
     Indication: Enterococcal infection
     Dosage: SALINE WAS ADMINISTERED DAILY VIA CHEST TUBE TO THE INTRAPLEURAL SPACE, WITH CLAMPING TO ALLOW FO...
     Route: 034
  2. SODIUM CHLORIDE [Concomitant]
     Active Substance: SODIUM CHLORIDE
     Dosage: DAPTOMYCIN 400 MG IN 50 ML NORMAL SALINE WAS ADMINISTERED DAILY VIA CHEST TUBE TO THE INTRAPLEURA...
     Route: 034

REACTIONS (1)
  - Off label use [Unknown]
